FAERS Safety Report 9832612 (Version 1)
Quarter: 2014Q1

REPORT INFORMATION
  Report Type: Spontaneous
  Country: US (occurrence: US)
  Receive Date: 20140121
  Receipt Date: 20140121
  Transmission Date: 20141002
  Serious: No
  Sender: FDA-Public Use
  Company Number: US-BAYER-2014-007385

PATIENT
  Age: 26 Year
  Sex: Female

DRUGS (1)
  1. FINACEA [Suspect]
     Indication: ACNE
     Dosage: UNK UNK, QD
     Route: 061

REACTIONS (2)
  - Exposure during pregnancy [None]
  - Exposure during breast feeding [None]
